FAERS Safety Report 4910502-7 (Version None)
Quarter: 2006Q1

REPORT INFORMATION
  Report Type: 
  Country: None (occurrence: None)
  Receive Date: 20060209
  Receipt Date: 20060130
  Transmission Date: 20060701
  Serious: Yes (Death, Life-Threatening, Hospitalization, Other)
  Sender: FDA-Public Use
  Company Number: A-CH2004-08277

PATIENT
  Age: 65 Year
  Sex: Female

DRUGS (2)
  1. TRACLEER [Suspect]
     Indication: PULMONARY HYPERTENSION
     Dosage: ORAL
     Route: 048
  2. PREVISCAN (FLUINDIONE) [Concomitant]

REACTIONS (4)
  - HYPOXIA [None]
  - LUNG DISORDER [None]
  - MYOCARDIAL INFARCTION [None]
  - OEDEMA DUE TO CARDIAC DISEASE [None]
